FAERS Safety Report 20304479 (Version 1)
Quarter: 2022Q1

REPORT INFORMATION
  Report Type: Spontaneous
  Country: US (occurrence: None)
  Receive Date: 20220105
  Receipt Date: 20220105
  Transmission Date: 20220423
  Serious: Yes (Life-Threatening, Hospitalization)
  Sender: FDA-Public Use
  Company Number: None

PATIENT
  Age: 54 Year
  Sex: Female
  Weight: 86.2 kg

DRUGS (1)
  1. SOTROVIMAB [Suspect]
     Active Substance: SOTROVIMAB
     Indication: COVID-19
     Dosage: FREQUENCY : ONCE;?
     Route: 042
     Dates: start: 20220105, end: 20220105

REACTIONS (11)
  - Palpitations [None]
  - Chest pain [None]
  - Nausea [None]
  - Vomiting [None]
  - Oxygen saturation decreased [None]
  - Blood pressure decreased [None]
  - Heart rate decreased [None]
  - Hypersensitivity [None]
  - Chest discomfort [None]
  - Anaemia [None]
  - Hypokalaemia [None]

NARRATIVE: CASE EVENT DATE: 20211205
